FAERS Safety Report 8605772-8 (Version None)
Quarter: 2012Q3

REPORT INFORMATION
  Report Type: 
  Country: None (occurrence: None)
  Receive Date: 20120820
  Receipt Date: 20120813
  Transmission Date: 20120928
  Serious: No
  Sender: FDA-Public Use
  Company Number: US-PFIZER INC-2012197620

PATIENT
  Age: 71 Year
  Sex: Male

DRUGS (3)
  1. NEXIUM [Concomitant]
     Indication: GASTRIC DISORDER
     Dosage: 50 MG, DAILY
  2. LYRICA [Suspect]
     Indication: NERVE COMPRESSION
  3. LYRICA [Suspect]
     Indication: NEUROPATHY PERIPHERAL
     Dosage: 50 MG, DAILY
     Dates: start: 20120709

REACTIONS (8)
  - FEELING ABNORMAL [None]
  - DYSPEPSIA [None]
  - OEDEMA PERIPHERAL [None]
  - JOINT SWELLING [None]
  - SOMNOLENCE [None]
  - ABDOMINAL DISCOMFORT [None]
  - VISION BLURRED [None]
  - NAUSEA [None]
